FAERS Safety Report 6407867-6 (Version None)
Quarter: 2009Q4

REPORT INFORMATION
  Report Type: 
  Country: None (occurrence: None)
  Receive Date: 20091015
  Receipt Date: 20091006
  Transmission Date: 20100525
  Serious: Yes (Congenital Anomaly, Other)
  Sender: FDA-Public Use
  Company Number: 2009US000578

PATIENT
  Sex: Male
  Weight: 2.6 kg

DRUGS (6)
  1. PROGRAF [Suspect]
     Indication: DRUG EXPOSURE DURING PREGNANCY
     Dosage: 2.5 MG, BID, ORAL; 3.5 MG, BID, ORAL;  4 MG, BID, ORAL
     Route: 048
  2. PREDNISONE TAB [Concomitant]
  3. AZATHIOPRINE [Concomitant]
  4. METOPROLOL (METOPROLOL) [Concomitant]
  5. PRENATAL VITAMINS (TOCOPHEROL, NICOTINIC ACID, VITAMIN D NOS, MINERALS [Concomitant]
  6. ASPIRIN [Concomitant]

REACTIONS (4)
  - CAESAREAN SECTION [None]
  - CLEFT LIP AND PALATE [None]
  - MATERNAL DRUGS AFFECTING FOETUS [None]
  - PREMATURE BABY [None]
